FAERS Safety Report 6727983-9 (Version None)
Quarter: 2010Q2

REPORT INFORMATION
  Report Type: 
  Country: None (occurrence: None)
  Receive Date: 20100512
  Receipt Date: 20100330
  Transmission Date: 20101027
  Serious: No
  Sender: FDA-Public Use
  Company Number: 1000012919

PATIENT
  Age: 55 Year
  Sex: Female

DRUGS (1)
  1. SAVELLA [Suspect]
     Dosage: ORAL
     Route: 048

REACTIONS (1)
  - POSTMENOPAUSAL HAEMORRHAGE [None]
